FAERS Safety Report 10204844 (Version 1)
Quarter: 2014Q2

REPORT INFORMATION
  Report Type: Spontaneous
  Country: US (occurrence: None)
  Receive Date: 20140527
  Receipt Date: 20140527
  Transmission Date: 20141212
  Serious: Yes (Hospitalization)
  Sender: FDA-Public Use
  Company Number: LMI-2014-00208

PATIENT
  Age: 61 Year
  Sex: Male
  Weight: 74 kg

DRUGS (7)
  1. DEFINITY [Suspect]
     Indication: ECHOCARDIOGRAM
     Dosage: 2 ML (1.3 ML DEFINITY IN 8.7 ML PRESERVATIVE FREE NORMAL SALINE) INTRAVENOUS BOLUS
     Route: 040
     Dates: start: 20140512, end: 20140512
  2. LASIX [Concomitant]
  3. LISINOPRIL [Concomitant]
  4. POTASSIUM CHLORIDE [Concomitant]
  5. ZOCOR [Concomitant]
  6. ASPIRIN [Concomitant]
  7. COREG [Concomitant]

REACTIONS (2)
  - Back pain [None]
  - Deep vein thrombosis [None]
